FAERS Safety Report 17074750 (Version 1)
Quarter: 2019Q4

REPORT INFORMATION
  Report Type: Report from Study
  Country: US (occurrence: US)
  Receive Date: 20191126
  Receipt Date: 20191126
  Transmission Date: 20200122
  Serious: Yes (Other)
  Sender: FDA-Public Use
  Company Number: US-UCBSA-2019038740

PATIENT
  Age: 35 Year
  Sex: Female

DRUGS (3)
  1. LACOSAMIDE. [Suspect]
     Active Substance: LACOSAMIDE
     Dosage: 300 MILLIGRAM, 2X/DAY (BID)
     Route: 048
     Dates: start: 20190905
  2. LACOSAMIDE. [Suspect]
     Active Substance: LACOSAMIDE
     Indication: PARTIAL SEIZURES
     Dosage: UNK
     Route: 048
  3. KEPPRA XR [Suspect]
     Active Substance: LEVETIRACETAM
     Indication: PRODUCT USED FOR UNKNOWN INDICATION
     Dosage: 2250 MILLIGRAM, 2X/DAY (BID)
     Route: 048

REACTIONS (4)
  - Intentional overdose [Unknown]
  - Prescribed overdose [Unknown]
  - Off label use [Unknown]
  - Gallbladder operation [Recovered/Resolved]

NARRATIVE: CASE EVENT DATE: 20190905
